FAERS Safety Report 5089426-3 (Version None)
Quarter: 2006Q3

REPORT INFORMATION
  Report Type: 
  Country: None (occurrence: None)
  Receive Date: 20060822
  Receipt Date: 20060803
  Transmission Date: 20061208
  Serious: Yes (Hospitalization)
  Sender: FDA-Public Use
  Company Number: ENT 2006-0108

PATIENT
  Sex: Male

DRUGS (1)
  1. COMTESS (ENTACAPONE) [Suspect]
     Dosage: 1 TDS

REACTIONS (1)
  - CHEST PAIN [None]
